FAERS Safety Report 4279718-X (Version None)
Quarter: 2004Q1

REPORT INFORMATION
  Report Type: 
  Country: None (occurrence: None)
  Receive Date: 20040123
  Receipt Date: 20040108
  Transmission Date: 20041129
  Serious: Yes (Hospitalization, Other)
  Sender: FDA-Public Use
  Company Number: 200308841

PATIENT
  Age: 39 Year
  Sex: Male

DRUGS (1)
  1. PEPCID AC [Suspect]
     Indication: ABDOMINAL PAIN UPPER
     Dosage: PO
     Route: 048
     Dates: start: 20011101

REACTIONS (4)
  - CONDITION AGGRAVATED [None]
  - GASTRIC CANCER STAGE II [None]
  - GASTRIC ULCER PERFORATION [None]
  - PERITONITIS [None]
